FAERS Safety Report 19047240 (Version 3)
Quarter: 2021Q2

REPORT INFORMATION
  Report Type: Spontaneous
  Country: US (occurrence: US)
  Receive Date: 20210323
  Receipt Date: 20210430
  Transmission Date: 20210717
  Serious: Yes (Other)
  Sender: FDA-Public Use
  Company Number: US-BAYER-2021-109988

PATIENT
  Age: 62 Year
  Sex: Female

DRUGS (1)
  1. MIRENA [Suspect]
     Active Substance: LEVONORGESTREL
     Dosage: 20 ?G PER DAY CONTINUOUSLY
     Route: 015
     Dates: start: 20210317

REACTIONS (5)
  - Uterine disorder [Not Recovered/Not Resolved]
  - Dysplasia [Not Recovered/Not Resolved]
  - Blood oestrogen increased [None]
  - Device use issue [None]
  - Off label use of device [None]

NARRATIVE: CASE EVENT DATE: 20210317
